FAERS Safety Report 6050139-2 (Version None)
Quarter: 2009Q1

REPORT INFORMATION
  Report Type: 
  Country: None (occurrence: None)
  Receive Date: 20090121
  Receipt Date: 20090112
  Transmission Date: 20090719
  Serious: Yes (Life-Threatening)
  Sender: FDA-Public Use
  Company Number: APP200801193

PATIENT
  Sex: 0

DRUGS (1)
  1. HEPARIN SODIUM INJECTION [Suspect]
     Indication: DRUG USE FOR UNKNOWN INDICATION
     Dosage: DILUTED IN SALINE
     Dates: start: 20081130

REACTIONS (2)
  - ANGIOEDEMA [None]
  - RESPIRATORY DISTRESS [None]
